FAERS Safety Report 5968186-5 (Version None)
Quarter: 2008Q4

REPORT INFORMATION
  Report Type: 
  Country: None (occurrence: None)
  Receive Date: 20081126
  Receipt Date: 20081118
  Transmission Date: 20090506
  Serious: Yes (Other)
  Sender: FDA-Public Use
  Company Number: JP-ASTRAZENECA-2008AP08323

PATIENT
  Age: 66 Year
  Sex: Male

DRUGS (1)
  1. DIPRIVAN [Suspect]
     Indication: MAINTENANCE OF ANAESTHESIA
     Dosage: ADMINISTERED AT 3 MICROGRAM/ML AT FIRST, THEN AT 9 MICROGRAM/ML.
     Route: 042
     Dates: start: 20080501, end: 20080501

REACTIONS (3)
  - ACCIDENTAL OVERDOSE [None]
  - BLOOD PRESSURE DECREASED [None]
  - PARALYSIS [None]
